FAERS Safety Report 4781839-X (Version None)
Quarter: 2005Q3

REPORT INFORMATION
  Report Type: 
  Country: None (occurrence: None)
  Receive Date: 20050927
  Receipt Date: 20050912
  Transmission Date: 20060218
  Serious: Yes (Hospitalization, Other)
  Sender: FDA-Public Use
  Company Number: USA0509107811

PATIENT
  Age: 56 Year
  Sex: Female
  Weight: 64 kg

DRUGS (1)
  1. HUMULIN R [Suspect]
     Dates: start: 19930101

REACTIONS (12)
  - ANAEMIA [None]
  - BONE INFECTION [None]
  - CHILLS [None]
  - DYSPNOEA [None]
  - EYE IRRITATION [None]
  - FOOT AMPUTATION [None]
  - FOOT FRACTURE [None]
  - HEADACHE [None]
  - INTERMITTENT CLAUDICATION [None]
  - MALAISE [None]
  - OVERWEIGHT [None]
  - THROAT IRRITATION [None]
